FAERS Safety Report 10205185 (Version 1)
Quarter: 2014Q2

REPORT INFORMATION
  Report Type: Spontaneous
  Country: CH (occurrence: CH)
  Receive Date: 20140529
  Receipt Date: 20140529
  Transmission Date: 20141212
  Serious: Yes (Hospitalization)
  Sender: FDA-Public Use
  Company Number: CH-GE HEALTHCARE MEDICAL DIAGNOSTICS-OMPQ-PR-1405S-0522

PATIENT
  Age: 94 Year
  Sex: Female

DRUGS (14)
  1. ACCUPAQUE [Suspect]
     Indication: PRODUCT USED FOR UNKNOWN INDICATION
     Route: 042
     Dates: start: 20140208, end: 20140208
  2. ACCUPAQUE [Suspect]
     Indication: DIAGNOSTIC PROCEDURE
  3. AUGMENTIN [Suspect]
     Indication: BRONCHOPNEUMONIA
     Route: 048
     Dates: start: 20140209, end: 20140209
  4. TAMIFLU [Suspect]
     Indication: INFLUENZA
     Route: 048
     Dates: start: 20140209
  5. ASPIRIN [Concomitant]
  6. COVERSUM [Concomitant]
     Indication: ISCHAEMIC CARDIOMYOPATHY
  7. TOREM [Concomitant]
     Indication: ESSENTIAL HYPERTENSION
  8. TAVEGYL [Concomitant]
     Indication: CARDIAC FAILURE
  9. PREDNISONE [Concomitant]
     Indication: ALLERGY PROPHYLAXIS
  10. NEXIUM [Concomitant]
     Indication: GASTROOESOPHAGEAL REFLUX PROPHYLAXIS
  11. DIFLUCAN [Concomitant]
     Indication: FUNGAL INFECTION
  12. TEMESTA [Concomitant]
     Indication: INSOMNIA
  13. DAFALGAN [Concomitant]
     Indication: PAIN
  14. CLEXANE [Concomitant]
     Indication: THROMBOSIS PROPHYLAXIS

REACTIONS (1)
  - Vasculitic rash [Recovered/Resolved]
